FAERS Safety Report 9702793 (Version 2)
Quarter: 2014Q2

REPORT INFORMATION
  Report Type: Spontaneous
  Country: US (occurrence: US)
  Receive Date: 20131121
  Receipt Date: 20140630
  Transmission Date: 20141212
  Serious: Yes (Hospitalization)
  Sender: FDA-Public Use
  Company Number: US-GLAXOSMITHKLINE-A1050505A

PATIENT
  Age: 38 Year
  Sex: Female

DRUGS (6)
  1. ADVAIR HFA [Suspect]
     Indication: DYSPNOEA
     Dosage: 1PUFF AS REQUIRED
     Route: 055
     Dates: start: 20130501
  2. VENTOLIN [Suspect]
     Indication: DYSPNOEA
     Dosage: 90MCG UNKNOWN
     Route: 055
     Dates: start: 20130501
  3. ZOLOFT [Concomitant]
  4. TRAZODONE [Concomitant]
  5. VALIUM [Concomitant]
  6. FISH OIL [Concomitant]

REACTIONS (3)
  - Pneumonia [Recovered/Resolved]
  - Wheezing [Unknown]
  - Lung disorder [Unknown]
